FAERS Safety Report 13493826 (Version 2)
Quarter: 2017Q2

REPORT INFORMATION
  Report Type: Spontaneous
  Country: US (occurrence: US)
  Receive Date: 20170427
  Receipt Date: 20170501
  Transmission Date: 20170830
  Serious: Yes (Hospitalization, Other)
  Sender: FDA-Public Use
  Company Number: US-BAUSCH-BL-2017-011128

PATIENT

DRUGS (1)
  1. FLUOROURACIL. [Suspect]
     Active Substance: FLUOROURACIL
     Indication: PRODUCT USED FOR UNKNOWN INDICATION
     Route: 042

REACTIONS (10)
  - Mucosal inflammation [Recovering/Resolving]
  - Incorrect drug administration duration [Recovering/Resolving]
  - Gastrointestinal disorder [Recovering/Resolving]
  - Bone marrow failure [Recovering/Resolving]
  - Arrhythmia [Recovering/Resolving]
  - Thrombocytopenia [Recovering/Resolving]
  - Medication error [Recovering/Resolving]
  - Accidental overdose [Recovering/Resolving]
  - Asthenia [Recovering/Resolving]
  - Oedema [Recovering/Resolving]
